FAERS Safety Report 17026225 (Version 1)
Quarter: 2019Q4

REPORT INFORMATION
  Report Type: Spontaneous
  Country: US (occurrence: US)
  Receive Date: 20191009
  Receipt Date: 20191009
  Transmission Date: 20200122
  Serious: Yes (Life-Threatening, Disabling, Other)
  Sender: FDA-Public Use
  Company Number: None

PATIENT
  Age: 68 Year
  Sex: Female
  Weight: 77.11 kg

DRUGS (6)
  1. HYDROCODONE [Suspect]
     Active Substance: HYDROCODONE
     Indication: FIBROMYALGIA
  2. LIDODERM [Suspect]
     Active Substance: LIDOCAINE
  3. FENTANYL. [Suspect]
     Active Substance: FENTANYL
  4. HYDROCODONE [Suspect]
     Active Substance: HYDROCODONE
     Indication: ARTHRITIS
  5. DARVOCET [Suspect]
     Active Substance: ACETAMINOPHEN\PROPOXYPHENE HYDROCHLORIDE
  6. HYDROCODONE BITARTRATE AND ACETAMINOPHEN [Suspect]
     Active Substance: ACETAMINOPHEN\HYDROCODONE BITARTRATE

REACTIONS (3)
  - Condition aggravated [None]
  - Memory impairment [None]
  - Neuropathy peripheral [None]
